FAERS Safety Report 8408467-9 (Version None)
Quarter: 2012Q2

REPORT INFORMATION
  Report Type: 
  Country: None (occurrence: None)
  Receive Date: 20120604
  Receipt Date: 20120524
  Transmission Date: 20120825
  Serious: Yes (Congenital Anomaly)
  Sender: FDA-Public Use
  Company Number: FR-FRI-1000028867

PATIENT
  Sex: Female
  Weight: 3.6 kg

DRUGS (2)
  1. ESCITALOPRAM [Suspect]
     Dosage: 10 MG
     Route: 064
     Dates: end: 20120204
  2. ZOLOFT [Concomitant]
     Route: 063

REACTIONS (3)
  - TREMOR [None]
  - FOETAL EXPOSURE DURING PREGNANCY [None]
  - GAZE PALSY [None]
